FAERS Safety Report 10058190 (Version 5)
Quarter: 2014Q2

REPORT INFORMATION
  Report Type: Spontaneous
  Country: US (occurrence: US)
  Receive Date: 20140404
  Receipt Date: 20140425
  Transmission Date: 20141212
  Serious: Yes (Other)
  Sender: FDA-Public Use
  Company Number: US-PFIZER INC-2014094212

PATIENT
  Sex: Male

DRUGS (1)
  1. LYRICA [Suspect]
     Dosage: UNK

REACTIONS (9)
  - Diabetes mellitus [Unknown]
  - Blood glucose increased [Unknown]
  - Frustration [Unknown]
  - Depressed mood [Unknown]
  - Sensory loss [Unknown]
  - Malaise [Unknown]
  - Pain in extremity [Unknown]
  - Pain [Unknown]
  - Nerve injury [Unknown]
